FAERS Safety Report 7382388-5 (Version None)
Quarter: 2011Q1

REPORT INFORMATION
  Report Type: 
  Country: None (occurrence: None)
  Receive Date: 20110329
  Receipt Date: 20110224
  Transmission Date: 20110831
  Serious: No
  Sender: FDA-Public Use
  Company Number: US-BAYER-2011-018495

PATIENT

DRUGS (6)
  1. UNCODEABLE ^UNCLASSIFIABLE^ [Concomitant]
  2. UNCODEABLE ^UNCLASSIFIABLE^ [Concomitant]
  3. ALEVE (CAPLET) [Suspect]
     Indication: HEADACHE
     Route: 048
  4. METHYLPREDNISOLONE [Concomitant]
     Indication: SWELLING
  5. TOPAMAX [Concomitant]
     Indication: HEADACHE
  6. UNCODEABLE ^UNCLASSIFIABLE^ [Concomitant]
     Indication: HEADACHE

REACTIONS (1)
  - HEADACHE [None]
